FAERS Safety Report 5736917-5 (Version None)
Quarter: 2008Q2

REPORT INFORMATION
  Report Type: 
  Country: None (occurrence: None)
  Receive Date: 20080509
  Receipt Date: 20080502
  Transmission Date: 20081010
  Serious: Yes (Hospitalization, Other)
  Sender: FDA-Public Use
  Company Number: 2008000977

PATIENT
  Age: 69 Year
  Sex: Male

DRUGS (9)
  1. ERLOTINIB (ERLOTINIB HCL) (TABLET) (ERLOTINIB HCL) [Suspect]
     Indication: LUNG SQUAMOUS CELL CARCINOMA STAGE UNSPECIFIED
     Dosage: (150 MG, QD), ORAL
     Route: 048
     Dates: start: 20080321, end: 20080402
  2. LOXONIN (LOXOPROFEN SODIUM) [Concomitant]
  3. FAMOTIDINE [Concomitant]
  4. LENDORM [Concomitant]
  5. FUNGIZONE [Concomitant]
  6. DECADRON [Concomitant]
  7. ROCEPHIN [Concomitant]
  8. RISPERDAL [Concomitant]
  9. GRAMALIL (TIAPRIDE HYDROCHLORIDE) [Concomitant]

REACTIONS (5)
  - CATHETER RELATED INFECTION [None]
  - ERYTHEMA MULTIFORME [None]
  - HEPATIC FUNCTION ABNORMAL [None]
  - ORAL HERPES [None]
  - PYREXIA [None]
